FAERS Safety Report 16086265 (Version 6)
Quarter: 2020Q3

REPORT INFORMATION
  Report Type: Report from Study
  Country: DE (occurrence: DE)
  Receive Date: 20190318
  Receipt Date: 20200703
  Transmission Date: 20201102
  Serious: Yes (Hospitalization)
  Sender: FDA-Public Use
  Company Number: DE-ROCHE-2279532

PATIENT
  Age: 32 Year
  Sex: Female
  Weight: 55 kg

DRUGS (6)
  1. VIGANTOL [COLECALCIFEROL] [Concomitant]
     Active Substance: CHOLECALCIFEROL
     Indication: PROPHYLAXIS
     Dosage: VITAMIN D PROPHYLAXIS
     Route: 048
     Dates: start: 20180918
  2. OCRELIZUMAB. [Suspect]
     Active Substance: OCRELIZUMAB
     Indication: MULTIPLE SCLEROSIS
     Route: 042
     Dates: start: 20180613, end: 20180627
  3. TOLPERISONE [Concomitant]
     Active Substance: TOLPERISONE
     Indication: MUSCLE SPASTICITY
     Route: 048
     Dates: start: 20181025
  4. FERRO?SANOL DUODENAL [Concomitant]
     Active Substance: FERROUS GLYCINE SULFATE
     Indication: IRON DEFICIENCY
     Route: 048
     Dates: start: 20180918
  5. OCRELIZUMAB. [Suspect]
     Active Substance: OCRELIZUMAB
     Route: 042
     Dates: start: 20190109
  6. NOVAMINSULFON [Concomitant]
     Active Substance: METAMIZOLE
     Indication: MIGRAINE
     Dosage: AS REQUIRED
     Route: 048
     Dates: start: 20190226

REACTIONS (2)
  - Iron deficiency anaemia [Unknown]
  - Uterine leiomyoma [Recovered/Resolved]

NARRATIVE: CASE EVENT DATE: 20190305
